FAERS Safety Report 12454565 (Version 1)
Quarter: 2016Q2

REPORT INFORMATION
  Report Type: Spontaneous
  Country: US (occurrence: None)
  Receive Date: 20160609
  Receipt Date: 20160609
  Transmission Date: 20160815
  Serious: Yes (Other)
  Sender: FDA-Public Use
  Company Number: None

PATIENT
  Age: 43 Year
  Sex: Female
  Weight: 63.05 kg

DRUGS (7)
  1. BIOTIN [Concomitant]
     Active Substance: BIOTIN
  2. BACLOFEN. [Concomitant]
     Active Substance: BACLOFEN
  3. CLONAZEPAM. [Concomitant]
     Active Substance: CLONAZEPAM
  4. VITAMIN B [Concomitant]
     Active Substance: VITAMIN B
  5. VIIBRYD [Concomitant]
     Active Substance: VILAZODONE HYDROCHLORIDE
  6. MAGNESIUM [Concomitant]
     Active Substance: MAGNESIUM
  7. ZECUITY [Suspect]
     Active Substance: SUMATRIPTAN SUCCINATE
     Indication: MIGRAINE
     Route: 061
     Dates: start: 20151101, end: 20151101

REACTIONS (9)
  - Application site swelling [None]
  - Application site inflammation [None]
  - Application site vesicles [None]
  - Application site warmth [None]
  - Application site discharge [None]
  - Application site urticaria [None]
  - Application site pain [None]
  - Application site pruritus [None]
  - Application site erythema [None]

NARRATIVE: CASE EVENT DATE: 20160607
